FAERS Safety Report 17391984 (Version 1)
Quarter: 2020Q1

REPORT INFORMATION
  Report Type: Spontaneous
  Country: ES (occurrence: ES)
  Receive Date: 20200207
  Receipt Date: 20200207
  Transmission Date: 20200409
  Serious: Yes (Hospitalization)
  Sender: FDA-Public Use
  Company Number: ES-ACCORD-171882

PATIENT
  Age: 84 Year
  Sex: Male

DRUGS (2)
  1. BRILIQUE [Interacting]
     Active Substance: TICAGRELOR
     Indication: ACUTE MYOCARDIAL INFARCTION
     Dosage: STRENGTH: 90 MG, 56 TABLETS
     Route: 048
     Dates: start: 20190621, end: 20191221
  2. ATORVASTATIN/ATORVASTATIN CALCIUM [Suspect]
     Active Substance: ATORVASTATIN CALCIUM
     Indication: HYPERCHOLESTEROLAEMIA
     Dosage: STRENGTH: 80 MG, 28 TABLETS
     Route: 048
     Dates: start: 20190621, end: 20191217

REACTIONS (4)
  - Drug interaction [Unknown]
  - Mixed liver injury [Recovered/Resolved]
  - Acute kidney injury [Recovered/Resolved]
  - Rhabdomyolysis [Recovered/Resolved]

NARRATIVE: CASE EVENT DATE: 20191218
